FAERS Safety Report 12234551 (Version 1)
Quarter: 2016Q2

REPORT INFORMATION
  Report Type: Spontaneous
  Country: AR (occurrence: AR)
  Receive Date: 20160404
  Receipt Date: 20160404
  Transmission Date: 20160815
  Serious: Yes (Other)
  Sender: FDA-Public Use
  Company Number: AR-MYLANLABS-2016M1013852

PATIENT

DRUGS (6)
  1. ANTI-PARKINSON [Concomitant]
     Active Substance: UNSPECIFIED INGREDIENT
     Dosage: FOUR TIMES A DAY
     Route: 065
  2. DULOXETINE. [Concomitant]
     Active Substance: DULOXETINE
     Indication: PARKINSON^S DISEASE
     Dosage: 30 MG DAILY
     Route: 065
  3. DONEPEZIL. [Concomitant]
     Active Substance: DONEPEZIL
     Indication: PARKINSON^S DISEASE
     Dosage: 5 MG DAILY
     Route: 065
  4. ROPINIROLE. [Suspect]
     Active Substance: ROPINIROLE
     Indication: PARKINSON^S DISEASE
     Dosage: 8MG AND THEN THE DOSE WAS INCREASED TO 12MG
     Route: 065
  5. ANTI-PARKINSON [Concomitant]
     Active Substance: UNSPECIFIED INGREDIENT
     Indication: PARKINSON^S DISEASE
     Route: 065
  6. ROPINIROLE. [Suspect]
     Active Substance: ROPINIROLE
     Dosage: 12MG
     Route: 065

REACTIONS (2)
  - Torticollis [Recovered/Resolved]
  - Camptocormia [Recovered/Resolved]
